FAERS Safety Report 5571741-8 (Version None)
Quarter: 2007Q4

REPORT INFORMATION
  Report Type: 
  Country: None (occurrence: None)
  Receive Date: 20071221
  Receipt Date: 20071221
  Transmission Date: 20080405
  Serious: Yes (Hospitalization)
  Sender: FDA-Public Use
  Company Number: A0700345A

PATIENT
  Age: 54 Year
  Sex: Male
  Weight: 82.5 kg

DRUGS (1)
  1. LAPATINIB [Suspect]
     Indication: SQUAMOUS CELL CARCINOMA
     Dosage: 1500MG PER DAY
     Route: 048
     Dates: start: 20071210

REACTIONS (1)
  - HEPATIC ENZYME INCREASED [None]
